FAERS Safety Report 12954277 (Version 10)
Quarter: 2022Q4

REPORT INFORMATION
  Report Type: Report from Study
  Country: JP (occurrence: JP)
  Receive Date: 20161118
  Receipt Date: 20221102
  Transmission Date: 20230113
  Serious: Yes (Death, Life-Threatening, Hospitalization, Other)
  Sender: FDA-Public Use
  Company Number: JP-SHIRE-JP201616794AA

PATIENT
  Age: 0 Year
  Sex: Female
  Weight: 5.4 kg

DRUGS (44)
  1. VELAGLUCERASE ALFA [Suspect]
     Active Substance: VELAGLUCERASE ALFA
     Indication: Gaucher^s disease
     Dosage: 60 INTERNATIONAL UNIT/KILOGRAM, Q2WEEKS
     Route: 041
     Dates: start: 20160528, end: 20160815
  2. VELAGLUCERASE ALFA [Suspect]
     Active Substance: VELAGLUCERASE ALFA
     Dosage: 60 INTERNATIONAL UNIT/KILOGRAM, Q2WEEKS
     Route: 041
     Dates: start: 20161011, end: 20170313
  3. VELAGLUCERASE ALFA [Suspect]
     Active Substance: VELAGLUCERASE ALFA
     Dosage: 40 INTERNATIONAL UNIT/KILOGRAM, Q2WEEKS
     Route: 041
     Dates: start: 20170327, end: 20170327
  4. VELAGLUCERASE ALFA [Suspect]
     Active Substance: VELAGLUCERASE ALFA
     Dosage: 60 INTERNATIONAL UNIT/KILOGRAM, Q2WEEKS
     Route: 041
     Dates: start: 20170410
  5. VELAGLUCERASE ALFA [Suspect]
     Active Substance: VELAGLUCERASE ALFA
     Dosage: 40 INTERNATIONAL UNIT/KILOGRAM, Q2WEEKS
     Route: 041
     Dates: start: 20170508, end: 20180820
  6. VELAGLUCERASE ALFA [Suspect]
     Active Substance: VELAGLUCERASE ALFA
     Dosage: 80 INTERNATIONAL UNIT/KILOGRAM, Q3WEEKS
     Route: 041
     Dates: start: 20180903, end: 20191223
  7. CERCINE [Concomitant]
     Active Substance: DIAZEPAM
     Indication: Gaucher^s disease
     Dosage: 2-6 MG/DAY
     Route: 048
     Dates: start: 20161005
  8. CERCINE [Concomitant]
     Active Substance: DIAZEPAM
     Indication: Seizure
     Dosage: 4 MILLIGRAM, QD
     Route: 048
     Dates: end: 20191107
  9. CERCINE [Concomitant]
     Active Substance: DIAZEPAM
     Dosage: 6 MILLIGRAM, QD
     Route: 048
     Dates: start: 20191108, end: 20200107
  10. NONTHRON [Concomitant]
     Indication: Product used for unknown indication
     Dosage: 500 INTERNATIONAL UNIT, QD
     Route: 041
     Dates: start: 20160828, end: 20160828
  11. CONSTAN                            /00384601/ [Concomitant]
     Indication: Gaucher^s disease type II
     Dosage: 4 MILLIGRAM, QD
     Route: 048
     Dates: start: 20170427, end: 20170518
  12. AMBROXOL HYDROCHLORIDE [Concomitant]
     Active Substance: AMBROXOL HYDROCHLORIDE
     Indication: Gaucher^s disease
     Dosage: 18 MILLIGRAM, QD
     Route: 048
     Dates: end: 20200107
  13. MIYA-BM [Concomitant]
     Active Substance: CLOSTRIDIUM BUTYRICUM SPORES STRAIN M-55
     Indication: Prophylaxis
     Dosage: 6 GRAM, QD
     Route: 048
     Dates: start: 20160808
  14. MIYA-BM [Concomitant]
     Active Substance: CLOSTRIDIUM BUTYRICUM SPORES STRAIN M-55
     Dosage: 0.45 GRAM, QD
     Route: 048
     Dates: end: 20200107
  15. MIDAZOLAM [Concomitant]
     Active Substance: MIDAZOLAM
     Indication: Gaucher^s disease
     Dosage: 2 MG/DOSE
     Route: 065
     Dates: start: 20160825
  16. MIDAZOLAM [Concomitant]
     Active Substance: MIDAZOLAM
     Indication: Seizure
     Dosage: 2-4 MG
     Route: 045
     Dates: end: 20200107
  17. THROMBOMODULIN ALFA [Concomitant]
     Active Substance: THROMBOMODULIN ALFA
     Indication: Product used for unknown indication
     Dosage: 2560 INTERNATIONAL UNIT
     Route: 041
     Dates: start: 20160827, end: 20160901
  18. CEFOTAXIME [Concomitant]
     Active Substance: CEFOTAXIME SODIUM
     Indication: Product used for unknown indication
     Dosage: 300 MILLIGRAM, QD
     Route: 041
     Dates: start: 20160827, end: 20160831
  19. PHENOBARBITAL SODIUM [Concomitant]
     Active Substance: PHENOBARBITAL SODIUM
     Indication: Product used for unknown indication
     Dosage: 20-120MG/DAY
     Route: 041
     Dates: start: 20160827, end: 20160831
  20. NAFAMOSTAT [Concomitant]
     Active Substance: NAFAMOSTAT
     Indication: Product used for unknown indication
     Dosage: 1 MG
     Route: 041
     Dates: start: 20160828, end: 20160830
  21. PHENOBAL                           /00023201/ [Concomitant]
     Indication: Product used for unknown indication
     Dosage: 32.5-70 MG/DAY
     Route: 048
     Dates: start: 20161005
  22. PHENOBAL                           /00023201/ [Concomitant]
     Indication: Seizure
     Dosage: 120 MILLIGRAM, QD
     Route: 048
     Dates: end: 20200107
  23. PHENOBAL                           /00023201/ [Concomitant]
     Indication: Muscle spasticity
  24. TRICLOFOS SODIUM [Concomitant]
     Active Substance: TRICLOFOS SODIUM
     Indication: Product used for unknown indication
     Dosage: 2-6 ML/DOSE
     Route: 048
     Dates: start: 20161005
  25. TRICLOFOS SODIUM [Concomitant]
     Active Substance: TRICLOFOS SODIUM
     Indication: Gaucher^s disease
     Dosage: 8 MILLILITER, QD
     Route: 048
     Dates: end: 20200107
  26. TRICLOFOS SODIUM [Concomitant]
     Active Substance: TRICLOFOS SODIUM
     Indication: Muscle spasticity
  27. DANTRIUM [Concomitant]
     Active Substance: DANTROLENE SODIUM
     Indication: Product used for unknown indication
     Dosage: 7-12.5 MG/DAY
     Route: 048
     Dates: start: 20170120, end: 20170316
  28. DANTRIUM [Concomitant]
     Active Substance: DANTROLENE SODIUM
     Indication: Gaucher^s disease
  29. RIVOTRIL [Concomitant]
     Active Substance: CLONAZEPAM
     Indication: Gaucher^s disease
     Dosage: 0.3 MILLIGRAM, QD
     Route: 048
     Dates: start: 20170208, end: 20170426
  30. ATARAX                             /00058402/ [Concomitant]
     Indication: Prophylaxis
     Dosage: 25 MILLIGRAM
     Route: 042
     Dates: start: 20161011, end: 20170130
  31. VALERIN                            /00228502/ [Concomitant]
     Indication: Gaucher^s disease type II
     Dosage: 200 MILLIGRAM, QD
     Route: 048
     Dates: start: 20170511, end: 20180524
  32. VALERIN                            /00228502/ [Concomitant]
     Dosage: 300 MILLIGRAM, QD
     Route: 048
     Dates: start: 20180525, end: 20190317
  33. VALERIN                            /00228502/ [Concomitant]
     Dosage: 360 MILLIGRAM, QD
     Route: 048
     Dates: start: 20190318, end: 20191207
  34. TIZANIDINE [Concomitant]
     Active Substance: TIZANIDINE
     Indication: Gaucher^s disease type II
     Dosage: 1.5 MILLIGRAM, QD
     Route: 048
     Dates: start: 20170609
  35. TIZANIDINE [Concomitant]
     Active Substance: TIZANIDINE
     Dosage: 3 MILLIGRAM, QD
     Route: 048
  36. TIZANIDINE [Concomitant]
     Active Substance: TIZANIDINE
     Dosage: 4.5 MILLIGRAM, QD
     Route: 048
     Dates: start: 20180524, end: 20180920
  37. TIZANIDINE [Concomitant]
     Active Substance: TIZANIDINE
     Dosage: 4 MILLIGRAM, QD
     Route: 048
     Dates: start: 20180921, end: 20200107
  38. TEGRETOL [Concomitant]
     Active Substance: CARBAMAZEPINE
     Indication: Product used for unknown indication
     Dosage: 30-60 MG/DAY
     Route: 048
     Dates: start: 20170407
  39. TEGRETOL [Concomitant]
     Active Substance: CARBAMAZEPINE
     Dosage: 60 MILLIGRAM
     Route: 048
     Dates: start: 20170504, end: 20170511
  40. EPERISONE [Concomitant]
     Active Substance: EPERISONE
     Indication: Gaucher^s disease type II
     Dosage: 75 MILLIGRAM, QD
     Route: 048
     Dates: start: 20161209, end: 20200107
  41. LIORESAL [Concomitant]
     Active Substance: BACLOFEN
     Indication: Gaucher^s disease
     Dosage: 5 MILLIGRAM, QD
     Route: 065
     Dates: start: 20180412, end: 20180513
  42. LIORESAL [Concomitant]
     Active Substance: BACLOFEN
     Dosage: 10 MILLIGRAM, QD
     Route: 065
     Dates: start: 20180524, end: 20190123
  43. LIORESAL [Concomitant]
     Active Substance: BACLOFEN
     Dosage: 15 MILLIGRAM, QD
     Route: 065
     Dates: start: 20190129, end: 20191107
  44. LIORESAL [Concomitant]
     Active Substance: BACLOFEN
     Dosage: 20 MILLIGRAM, QD
     Route: 065
     Dates: start: 20191108, end: 20200107

REACTIONS (10)
  - Respiratory failure [Recovered/Resolved with Sequelae]
  - Hyperkalaemia [Unknown]
  - Arrhythmia [Unknown]
  - Hepatic function abnormal [Not Recovered/Not Resolved]
  - Injection site swelling [Recovering/Resolving]
  - Pyrexia [Recovered/Resolved]
  - Pneumonia [Recovered/Resolved]
  - Gastroenteritis adenovirus [Recovered/Resolved]
  - Hepatic function abnormal [Fatal]
  - Renal impairment [Fatal]

NARRATIVE: CASE EVENT DATE: 20160328
